FAERS Safety Report 6260164-4 (Version None)
Quarter: 2009Q3

REPORT INFORMATION
  Report Type: 
  Country: None (occurrence: None)
  Receive Date: 20090708
  Receipt Date: 20090629
  Transmission Date: 20100115
  Serious: Yes (Hospitalization)
  Sender: FDA-Public Use
  Company Number: A0795543A

PATIENT
  Age: 19 Year
  Sex: Female

DRUGS (1)
  1. LAMICTAL [Suspect]
     Indication: EPILEPSY
     Dosage: 1200MG PER DAY
     Route: 048

REACTIONS (3)
  - DIZZINESS [None]
  - DRUG SCREEN POSITIVE [None]
  - INCORRECT DOSE ADMINISTERED [None]
